FAERS Safety Report 7867186-8 (Version None)
Quarter: 2011Q4

REPORT INFORMATION
  Report Type: 
  Country: None (occurrence: None)
  Receive Date: 20111028
  Receipt Date: 20111024
  Transmission Date: 20120403
  Serious: Yes (Other)
  Sender: FDA-Public Use
  Company Number: US-GLAXOSMITHKLINE-A0950251A

PATIENT
  Age: 45 Year
  Sex: Male

DRUGS (9)
  1. IRON [Concomitant]
  2. HYDROCODONE BITARTRATE [Concomitant]
  3. ARIXTRA [Suspect]
     Indication: THROMBOSIS PROPHYLAXIS
     Dosage: 10MG PER DAY
     Route: 058
     Dates: start: 20110801
  4. PEPCID AC [Concomitant]
  5. EFFIENT [Concomitant]
  6. SIMVASTATIN [Concomitant]
  7. METFORMIN [Concomitant]
  8. METOPROLOL TARTRATE [Concomitant]
  9. DIAZEPAM [Concomitant]

REACTIONS (1)
  - THROMBOSIS [None]
